FAERS Safety Report 19449941 (Version 4)
Quarter: 2021Q3

REPORT INFORMATION
  Report Type: Report from Study
  Country: GB (occurrence: GB)
  Receive Date: 20210622
  Receipt Date: 20210730
  Transmission Date: 20211014
  Serious: Yes (Other)
  Sender: FDA-Public Use
  Company Number: GB-PFIZER INC-2019050393

PATIENT
  Age: 53 Year
  Sex: Female

DRUGS (12)
  1. DENOSUMAB [Suspect]
     Active Substance: DENOSUMAB
     Indication: BREAST CANCER
     Dosage: 120 MG, EVERY 3 WEEKS
     Route: 058
     Dates: start: 20151203
  2. TRASTUZUMAB. [Suspect]
     Active Substance: TRASTUZUMAB
     Dosage: 819 MG, EVERY 3 WEEKS (MAINTENANCE DOSE)
     Route: 042
     Dates: start: 20151223, end: 20160113
  3. TRASTUZUMAB. [Suspect]
     Active Substance: TRASTUZUMAB
     Indication: BREAST CANCER
     Dosage: 1071 MG, 1X/DAY (LOADING DOSE 1 CYCLE PER REGIMEN)
     Route: 042
     Dates: start: 20151203, end: 20151203
  4. PERTUZUMAB. [Suspect]
     Active Substance: PERTUZUMAB
     Dosage: 420 MG, EVERY 3 WEEKS (MAINTAINENCE DOSE)
     Route: 042
     Dates: start: 20151223, end: 20160720
  5. DOCETAXEL. [Suspect]
     Active Substance: DOCETAXEL
     Indication: BREAST CANCER
     Dosage: 1 CYCLE PER REGIMEN
     Route: 042
     Dates: start: 20151204, end: 20151204
  6. TRASTUZUMAB EMTANSINE [Suspect]
     Active Substance: ADO-TRASTUZUMAB EMTANSINE
     Indication: BREAST CANCER
     Dosage: 450 MG, EVERY 3 WEEKS
     Route: 042
     Dates: start: 20160817, end: 20161109
  7. TRASTUZUMAB EMTANSINE [Suspect]
     Active Substance: ADO-TRASTUZUMAB EMTANSINE
     Dosage: (FORM STRENGTH: 230 UNITED NOT REPORTED))
  8. DOCETAXEL. [Suspect]
     Active Substance: DOCETAXEL
     Dosage: 5 CYCLES PER REGIMEN
     Route: 042
     Dates: start: 20151223, end: 20160113
  9. TRASTUZUMAB. [Suspect]
     Active Substance: TRASTUZUMAB
     Dosage: 735 MG, EVERY 3 WEEKS (MAINTENANCE DOSE)
     Route: 042
     Dates: start: 20160203, end: 20160720
  10. DOCETAXEL. [Suspect]
     Active Substance: DOCETAXEL
     Dosage: 90 MG, EVERY 3 WEEKS
     Route: 042
     Dates: start: 20160203, end: 20160316
  11. DENOSUMAB [Suspect]
     Active Substance: DENOSUMAB
     Dosage: (FORM STRENGTH: 245 (UNIT NOT REPORTED))
  12. PERTUZUMAB. [Suspect]
     Active Substance: PERTUZUMAB
     Indication: BREAST CANCER
     Dosage: 840 MG, EVERY 3 WEEKS (LOADING DOSE, 1 CYCLE PER REGIMEN)
     Route: 042
     Dates: start: 20151203, end: 20151203

REACTIONS (14)
  - Spinal pain [Recovered/Resolved]
  - Migraine [Recovered/Resolved]
  - Fatigue [Recovering/Resolving]
  - Diarrhoea [Recovered/Resolved]
  - Diabetes mellitus [Not Recovered/Not Resolved]
  - Blood cholesterol increased [Unknown]
  - Cough [Not Recovered/Not Resolved]
  - Nail discolouration [Unknown]
  - Vomiting [Recovered/Resolved]
  - Onychomycosis [Unknown]
  - Decreased appetite [Unknown]
  - Depressed mood [Recovered/Resolved]
  - Vomiting [Recovered/Resolved]
  - Dyspnoea [Unknown]

NARRATIVE: CASE EVENT DATE: 20160113
